FAERS Safety Report 9955703 (Version 1)
Quarter: 2014Q1

REPORT INFORMATION
  Report Type: Report from Study
  Country: US (occurrence: US)
  Receive Date: 20140304
  Receipt Date: 20140304
  Transmission Date: 20141002
  Serious: No
  Sender: FDA-Public Use
  Company Number: US-ABBVIE-13P-163-1087022-00

PATIENT
  Age: 26 Year
  Sex: Female

DRUGS (3)
  1. HUMIRA [Suspect]
     Indication: CROHN^S DISEASE
     Dosage: LOADING DOSE
     Dates: start: 20130501
  2. VITAMIN B [Concomitant]
     Indication: VITAMIN SUPPLEMENTATION
  3. PROCTOFOAM [Concomitant]
     Indication: CROHN^S DISEASE
     Dosage: EVERY NIGHT

REACTIONS (1)
  - Injection site reaction [Not Recovered/Not Resolved]
